FAERS Safety Report 17035811 (Version 1)
Quarter: 2019Q4

REPORT INFORMATION
  Report Type: Spontaneous
  Country: US (occurrence: US)
  Receive Date: 20191114
  Receipt Date: 20191114
  Transmission Date: 20200122
  Serious: No
  Sender: FDA-Public Use
  Company Number: None

PATIENT
  Age: 29 Year
  Sex: Female
  Weight: 94.2 kg

DRUGS (1)
  1. ZULRESSO [Suspect]
     Active Substance: BREXANOLONE
     Indication: PERINATAL DEPRESSION
     Dosage: ?          OTHER FREQUENCY:CONTINUOUS;?
     Route: 041
     Dates: start: 20191105, end: 20191108

REACTIONS (5)
  - Product administration error [None]
  - Infusion site extravasation [None]
  - Infusion site induration [None]
  - Drug monitoring procedure incorrectly performed [None]
  - Infusion site pain [None]

NARRATIVE: CASE EVENT DATE: 20191107
